FAERS Safety Report 10537444 (Version 6)
Quarter: 2015Q1

REPORT INFORMATION
  Report Type: Spontaneous
  Country: US (occurrence: US)
  Receive Date: 20141023
  Receipt Date: 20150216
  Transmission Date: 20150720
  Serious: Yes (Hospitalization, Other)
  Sender: FDA-Public Use
  Company Number: US-UNITED THERAPEUTICS-UNT-2014-009266

PATIENT
  Age: 41 Year
  Sex: Female
  Weight: 96.6 kg

DRUGS (3)
  1. REMODULIN [Suspect]
     Active Substance: TREPROSTINIL
     Dosage: 0.036 ?G/KG, CONTINUING
     Route: 058
     Dates: start: 20140610
  2. ASPIRIN. [Concomitant]
     Active Substance: ASPIRIN
     Indication: PRODUCT USED FOR UNKNOWN INDICATION
  3. REMODULIN [Suspect]
     Active Substance: TREPROSTINIL
     Indication: PULMONARY ARTERIAL HYPERTENSION
     Dosage: 0.027 ?G/KG, CONTINUING
     Route: 058
     Dates: start: 20140411

REACTIONS (12)
  - Sluggishness [Unknown]
  - Hypotension [Unknown]
  - Infusion site erythema [Unknown]
  - Infusion site oedema [Unknown]
  - Diarrhoea [Unknown]
  - Stress [Unknown]
  - Thyroid disorder [Unknown]
  - Infusion site infection [Unknown]
  - Depression [Unknown]
  - Bipolar disorder [Unknown]
  - Drug dose omission [Unknown]
  - Fatigue [Unknown]

NARRATIVE: CASE EVENT DATE: 2014
